FAERS Safety Report 5062884-6 (Version None)
Quarter: 2006Q3

REPORT INFORMATION
  Report Type: 
  Country: None (occurrence: None)
  Receive Date: 20060724
  Receipt Date: 20060721
  Transmission Date: 20061208
  Serious: Yes (Death, Hospitalization)
  Sender: FDA-Public Use
  Company Number: 200610683BVD

PATIENT
  Age: 59 Year
  Sex: Male
  Weight: 109 kg

DRUGS (2)
  1. SORAFENIB [Suspect]
     Indication: RENAL CELL CARCINOMA STAGE UNSPECIFIED
     Dosage: SEE IMAGE
     Route: 048
     Dates: start: 20060510, end: 20060518
  2. SORAFENIB [Suspect]
     Indication: RENAL CELL CARCINOMA STAGE UNSPECIFIED
     Dosage: SEE IMAGE
     Route: 048
     Dates: start: 20060608, end: 20060618

REACTIONS (7)
  - ASCITES [None]
  - DISEASE PROGRESSION [None]
  - GASTROENTERITIS [None]
  - GENERAL PHYSICAL HEALTH DETERIORATION [None]
  - ORAL INTAKE REDUCED [None]
  - RENAL FAILURE [None]
  - RENAL IMPAIRMENT [None]
